FAERS Safety Report 23346091 (Version 1)
Quarter: 2023Q4

REPORT INFORMATION
  Report Type: Spontaneous
  Country: US (occurrence: None)
  Receive Date: 20231227
  Receipt Date: 20231227
  Transmission Date: 20240110
  Serious: Yes (Other)
  Sender: FDA-Public Use
  Company Number: None

PATIENT
  Age: 22 Year
  Sex: Female
  Weight: 49.95 kg

DRUGS (1)
  1. FLUDROCORTISONE [Suspect]
     Active Substance: FLUDROCORTISONE
     Indication: Postural orthostatic tachycardia syndrome
     Dosage: OTHER QUANTITY : 1 TABLET(S);?
     Route: 048
     Dates: start: 20140401, end: 20231221

REACTIONS (6)
  - Angiopathy [None]
  - Pain [None]
  - Pain [None]
  - Vascular pain [None]
  - Therapy change [None]
  - Blood pressure increased [None]

NARRATIVE: CASE EVENT DATE: 20231215
